FAERS Safety Report 4886808-7 (Version None)
Quarter: 2006Q1

REPORT INFORMATION
  Report Type: 
  Country: None (occurrence: None)
  Receive Date: 20060119
  Receipt Date: 20060119
  Transmission Date: 20060701
  Serious: Yes (Death, Hospitalization)
  Sender: FDA-Public Use
  Company Number: None

PATIENT
  Age: 57 Year
  Sex: Male
  Weight: 80 kg

DRUGS (7)
  1. CLINDAMYCIN [Suspect]
     Indication: CELLULITIS
     Dosage: 300 MG   Q6H  PO
     Route: 048
     Dates: start: 20051206, end: 20051216
  2. CEPHALEXIN [Suspect]
     Dosage: 500 MG   Q12H   PO
     Route: 048
     Dates: start: 20051129, end: 20051206
  3. LABETOLOL [Concomitant]
  4. DIOVAN [Concomitant]
  5. HYDROCHLOROTHIAZIDE [Concomitant]
  6. ACIPHEX [Concomitant]
  7. LORAZEPAM [Concomitant]

REACTIONS (2)
  - CLOSTRIDIUM COLITIS [None]
  - MEGACOLON [None]
